FAERS Safety Report 17315711 (Version 2)
Quarter: 2020Q1

REPORT INFORMATION
  Report Type: Spontaneous
  Country: US (occurrence: US)
  Receive Date: 20200124
  Receipt Date: 20200302
  Transmission Date: 20200409
  Serious: Yes (Other)
  Sender: FDA-Public Use
  Company Number: US-PFIZER INC-2020030261

PATIENT
  Age: 59 Year
  Sex: Female

DRUGS (2)
  1. XELJANZ XR [Suspect]
     Active Substance: TOFACITINIB CITRATE
     Indication: RHEUMATOID ARTHRITIS
     Dosage: 11 MG, DAILY
     Route: 058
     Dates: start: 201909, end: 20191127
  2. XELJANZ XR [Suspect]
     Active Substance: TOFACITINIB CITRATE
     Dosage: 11 MG, DAILY
     Route: 058
     Dates: start: 20200102

REACTIONS (12)
  - Therapeutic product effect incomplete [Unknown]
  - Inflammation [Unknown]
  - Arthritis [Unknown]
  - Clostridium difficile infection [Unknown]
  - Depression [Recovered/Resolved]
  - Off label use [Unknown]
  - Arthralgia [Recovering/Resolving]
  - Condition aggravated [Unknown]
  - Memory impairment [Unknown]
  - Infection [Unknown]
  - Product use issue [Unknown]
  - Pain [Recovering/Resolving]

NARRATIVE: CASE EVENT DATE: 201911
